FAERS Safety Report 20572225 (Version 1)
Quarter: 2022Q1

REPORT INFORMATION
  Report Type: Spontaneous
  Country: US (occurrence: None)
  Receive Date: 20220308
  Receipt Date: 20220308
  Transmission Date: 20220423
  Serious: Yes (Hospitalization)
  Sender: FDA-Public Use
  Company Number: None

PATIENT
  Age: 21 Year
  Sex: Female

DRUGS (1)
  1. METFORMIN [Suspect]
     Active Substance: METFORMIN HYDROCHLORIDE

REACTIONS (5)
  - Pancreatitis acute [None]
  - Pancreatic pseudocyst [None]
  - Pancreatic disorder [None]
  - Sepsis [None]
  - Osteonecrosis [None]

NARRATIVE: CASE EVENT DATE: 20220210
